FAERS Safety Report 8286053-1 (Version None)
Quarter: 2012Q2

REPORT INFORMATION
  Report Type: 
  Country: None (occurrence: None)
  Receive Date: 20120416
  Receipt Date: 20070316
  Transmission Date: 20120825
  Serious: No
  Sender: FDA-Public Use
  Company Number: 2007BI006310

PATIENT
  Age: 51 Year
  Sex: Female

DRUGS (6)
  1. TYSABRI [Suspect]
     Route: 042
     Dates: start: 20110304
  2. AVONEX [Concomitant]
     Indication: MULTIPLE SCLEROSIS
     Route: 042
     Dates: start: 20020301
  3. AVONEX [Concomitant]
     Route: 042
     Dates: start: 20030501
  4. TYSABRI [Suspect]
     Route: 042
     Dates: start: 20050217, end: 20050217
  5. TYSABRI [Suspect]
     Route: 042
     Dates: start: 20070404, end: 20110105
  6. TYSABRI [Suspect]
     Indication: MULTIPLE SCLEROSIS
     Route: 042

REACTIONS (1)
  - GAIT DISTURBANCE [None]
